FAERS Safety Report 5314978-5 (Version None)
Quarter: 2007Q2

REPORT INFORMATION
  Report Type: 
  Country: None (occurrence: None)
  Receive Date: 20070502
  Receipt Date: 20070419
  Transmission Date: 20071010
  Serious: Yes (Hospitalization)
  Sender: FDA-Public Use
  Company Number: US-ELI_LILLY_AND_COMPANY-US200704004321

PATIENT
  Age: 52 Year
  Sex: Female
  Weight: 77.097 kg

DRUGS (7)
  1. CYMBALTA [Suspect]
     Indication: DEPRESSION
     Dosage: 20 MG, DAILY (1/D)
     Dates: start: 20070412
  2. DAYPRO [Concomitant]
     Indication: ARTHRITIS
     Dosage: 600 MG, 2/D
  3. ESTRADIOL [Concomitant]
     Indication: OESTROGEN REPLACEMENT THERAPY
     Dosage: 1 MG, DAILY (1/D)
  4. SINGULAIR [Concomitant]
     Indication: HYPERSENSITIVITY
     Dosage: 10 MG, EACH EVENING
  5. FLONASE [Concomitant]
     Dosage: 2 UNK, DAILY (1/D)
  6. ASTELIN [Concomitant]
     Dosage: 1 UNK, 2/D
  7. TYLENOL                                 /SCH/ [Concomitant]
     Dosage: 1000 MG, 3/D

REACTIONS (6)
  - BLOOD PRESSURE INCREASED [None]
  - CHEST PAIN [None]
  - HEART RATE INCREASED [None]
  - MEMORY IMPAIRMENT [None]
  - MUSCULAR WEAKNESS [None]
  - NAUSEA [None]
